FAERS Safety Report 8699995 (Version 2)
Quarter: 2013Q4

REPORT INFORMATION
  Report Type: Spontaneous
  Country: US (occurrence: US)
  Receive Date: 20120802
  Receipt Date: 20131031
  Transmission Date: 20140711
  Serious: Yes (Other)
  Sender: FDA-Public Use
  Company Number: US-009507513-1207USA010200

PATIENT
  Age: 35 Year
  Sex: Female

DRUGS (3)
  1. JANUMET [Suspect]
     Dosage: UNK, UNKNOWN
     Route: 064
  2. ASPIRIN CARDIO [Suspect]
     Dosage: 100 MG, QD
     Route: 064
  3. LANTUS [Suspect]
     Dosage: 30 IU, UNK
     Route: 064

REACTIONS (2)
  - Abortion spontaneous [Unknown]
  - Maternal exposure during pregnancy [Unknown]
